FAERS Safety Report 18492301 (Version 1)
Quarter: 2020Q4

REPORT INFORMATION
  Report Type: Report from Study
  Country: US (occurrence: US)
  Receive Date: 20201111
  Receipt Date: 20201111
  Transmission Date: 20210114
  Serious: Yes (Other)
  Sender: FDA-Public Use
  Company Number: NVSC2020US297629

PATIENT
  Sex: Female
  Weight: 60.5 kg

DRUGS (2)
  1. ADEMPAS [Concomitant]
     Active Substance: RIOCIGUAT
     Indication: PRODUCT USED FOR UNKNOWN INDICATION
     Route: 065
  2. TREPROSTINIL. [Suspect]
     Active Substance: TREPROSTINIL
     Indication: PULMONARY ARTERIAL HYPERTENSION
     Dosage: 40 NG/KG/MIN (CONTINUOUS)
     Route: 042
     Dates: start: 20201027

REACTIONS (6)
  - Seizure [Unknown]
  - Peripheral swelling [Unknown]
  - Hypotension [Unknown]
  - Tremor [Unknown]
  - Extremity contracture [Unknown]
  - Diarrhoea [Unknown]
